FAERS Safety Report 8978209 (Version 1)
Quarter: 2012Q4

REPORT INFORMATION
  Report Type: 
  Country: US (occurrence: US)
  Receive Date: 20121221
  Receipt Date: 20121221
  Transmission Date: 20130627
  Serious: Yes (Other)
  Sender: FDA-Public Use
  Company Number: US-BAYER-2012-089432

PATIENT
  Age: 54 Year
  Sex: Female

DRUGS (6)
  1. BETASERON [Suspect]
     Indication: MULTIPLE SCLEROSIS
     Dosage: 4 miu, QOD
     Route: 058
     Dates: start: 20120813
  2. BETASERON [Suspect]
     Indication: MULTIPLE SCLEROSIS
     Dosage: 6 miu, QOD
     Route: 058
  3. BETASERON [Suspect]
     Indication: MULTIPLE SCLEROSIS
     Dosage: 8 miu, QOD
     Route: 058
     Dates: end: 20121209
  4. TYLENOL PM [Concomitant]
     Indication: INSOMNIA
  5. BUSPAR [Concomitant]
     Dosage: UNK
     Dates: end: 20121209
  6. ZOLOFT [Concomitant]
     Indication: DEPRESSION
     Dosage: 40 mg, UNK

REACTIONS (7)
  - Insomnia [Not Recovered/Not Resolved]
  - Fatigue [Not Recovered/Not Resolved]
  - Stress [Not Recovered/Not Resolved]
  - Anxiety [Not Recovered/Not Resolved]
  - Hallucination, auditory [Recovered/Resolved]
  - Headache [Recovered/Resolved]
  - Toothache [Recovered/Resolved]
